FAERS Safety Report 7574649-1 (Version None)
Quarter: 2011Q2

REPORT INFORMATION
  Report Type: 
  Country: None (occurrence: None)
  Receive Date: 20110627
  Receipt Date: 20110617
  Transmission Date: 20111010
  Serious: Yes (Disabling)
  Sender: FDA-Public Use
  Company Number: FR-ASTRAZENECA-2011SE36899

PATIENT
  Age: 65 Year
  Sex: Male

DRUGS (9)
  1. NEXIUM [Suspect]
     Indication: PROPHYLAXIS AGAINST GASTROINTESTINAL ULCER
     Route: 048
     Dates: start: 20110411, end: 20110417
  2. MODOPAR [Suspect]
     Indication: PARKINSON'S DISEASE
     Route: 048
  3. ALLOPURINOL [Concomitant]
  4. KETOPROFEN [Suspect]
     Indication: DERMATITIS
     Route: 048
     Dates: start: 20110411, end: 20110417
  5. TRIVASTAL LP [Concomitant]
     Indication: PARKINSON'S DISEASE
     Route: 048
  6. PYOSTACINE [Suspect]
     Indication: DERMATITIS
     Route: 048
     Dates: start: 20110411, end: 20110417
  7. MODUCREN [Concomitant]
  8. MODOPAR LP [Suspect]
     Indication: PARKINSON'S DISEASE
     Route: 048
  9. AZILECT [Concomitant]
     Indication: PARKINSON'S DISEASE
     Route: 048

REACTIONS (1)
  - PARKINSON'S DISEASE [None]
